FAERS Safety Report 14912050 (Version 1)
Quarter: 2018Q2

REPORT INFORMATION
  Report Type: Spontaneous
  Country: US (occurrence: US)
  Receive Date: 20180518
  Receipt Date: 20180518
  Transmission Date: 20180711
  Serious: No
  Sender: FDA-Public Use
  Company Number: US-PFIZER INC-2016572784

PATIENT
  Age: 66 Year
  Sex: Female

DRUGS (14)
  1. LYRICA [Suspect]
     Active Substance: PREGABALIN
     Indication: PAIN
     Dosage: 75 MG, 2X/DAY
     Route: 048
     Dates: start: 20160825
  2. ESTRADIOL. [Concomitant]
     Active Substance: ESTRADIOL
     Dosage: 1 DF, 2X/WEEK (FOR 30 DAYS ) (0.1MG/24HR)
     Route: 062
     Dates: start: 20161031
  3. FLUTICASONE PROPIONATE. [Concomitant]
     Active Substance: FLUTICASONE PROPIONATE
     Dosage: UNK UNK, 1X/DAY (1 TO 2 SPRAYS )
     Route: 045
     Dates: start: 20160411
  4. VALSARTAN-HYDROCHLOROTHIAZIDE [Concomitant]
     Active Substance: HYDROCHLOROTHIAZIDE\VALSARTAN
     Dosage: UNK UNK, DAILY [VALSARTAN 320 MG]/ [HYDROCHLOROTHIAZIDE 25 MG]
     Route: 048
     Dates: start: 20160825
  5. CELEBREX [Concomitant]
     Active Substance: CELECOXIB
     Dosage: 200 MG, 2X/DAY
     Dates: start: 20160411
  6. MONTELUKAST SODIUM. [Concomitant]
     Active Substance: MONTELUKAST SODIUM
     Dosage: 10 MG, 1X/DAY(IN THE EVENING)
     Route: 048
     Dates: start: 20151113
  7. LIVALO [Concomitant]
     Active Substance: PITAVASTATIN CALCIUM
     Dosage: 4 MG, DAILY
     Route: 048
     Dates: start: 20131204
  8. SPIRONOLACTONE. [Concomitant]
     Active Substance: SPIRONOLACTONE
     Dosage: 100 MG, DAILY
     Route: 048
     Dates: start: 20160722
  9. WELLBUTRIN SR [Concomitant]
     Active Substance: BUPROPION HYDROCHLORIDE
     Dosage: 150 MG, 2X/DAY
     Route: 048
     Dates: start: 20150911
  10. LIVALO [Concomitant]
     Active Substance: PITAVASTATIN CALCIUM
     Dosage: 4 MG, DAILY
     Route: 048
     Dates: start: 20160613
  11. PERCOCET [Concomitant]
     Active Substance: ACETAMINOPHEN\OXYCODONE HYDROCHLORIDE
     Dosage: UNK UNK, AS NEEDED [OXYCODONE HYDROCHLORIDE 325 MG]/ [ PARACETAMOL 5 MG] (TWO TIMES DAILY)
     Route: 048
  12. WELLBUTRIN XL [Concomitant]
     Active Substance: BUPROPION HYDROCHLORIDE
     Dosage: 300 MG, DAILY
     Route: 048
     Dates: start: 20160523
  13. NEXIUM [Concomitant]
     Active Substance: ESOMEPRAZOLE MAGNESIUM
     Dosage: 40 MG, DAILY
     Route: 048
     Dates: start: 20140211
  14. LYRICA [Suspect]
     Active Substance: PREGABALIN
     Indication: NEUROPATHY PERIPHERAL
     Dosage: 100 MG, 2X/DAY
     Route: 048

REACTIONS (2)
  - Intentional product use issue [Unknown]
  - Somnolence [Unknown]
